FAERS Safety Report 7928535-5 (Version None)
Quarter: 2011Q4

REPORT INFORMATION
  Report Type: 
  Country: None (occurrence: None)
  Receive Date: 20111118
  Receipt Date: 20111108
  Transmission Date: 20120403
  Serious: Yes (Other)
  Sender: FDA-Public Use
  Company Number: FR-BRISTOL-MYERS SQUIBB COMPANY-16224107

PATIENT
  Sex: Male

DRUGS (2)
  1. ABACAVIR SULFATE AND LAMIVUDINE [Suspect]
     Indication: HIV INFECTION
  2. REYATAZ [Suspect]
     Indication: HIV INFECTION

REACTIONS (1)
  - RENAL FAILURE [None]
